FAERS Safety Report 4813068-5 (Version None)
Quarter: 2005Q4

REPORT INFORMATION
  Report Type: 
  Country: None (occurrence: None)
  Receive Date: 20051028
  Receipt Date: 20051024
  Transmission Date: 20060501
  Serious: Yes (Other)
  Sender: FDA-Public Use
  Company Number: GB-JNJFOC-20051005007

PATIENT
  Sex: Female
  Weight: 64 kg

DRUGS (8)
  1. REMICADE [Suspect]
     Indication: RHEUMATOID ARTHRITIS
     Route: 042
  2. PREDNISOLONE [Concomitant]
     Route: 065
  3. CODEINE PHOSPHATE AND ACETAMINOPHEN [Concomitant]
     Route: 065
  4. CODEINE PHOSPHATE AND ACETAMINOPHEN [Concomitant]
     Route: 065
  5. ATENOLOL [Concomitant]
     Route: 065
  6. CLOPIDOGREL [Concomitant]
     Route: 065
  7. LANSOPRAZOLE [Concomitant]
     Route: 065
  8. SIMVASTATIN [Concomitant]
     Route: 065

REACTIONS (1)
  - BLADDER CANCER [None]
